FAERS Safety Report 7869595-X (Version None)
Quarter: 2011Q4

REPORT INFORMATION
  Report Type: 
  Country: None (occurrence: None)
  Receive Date: 20111028
  Receipt Date: 20110106
  Transmission Date: 20120403
  Serious: Yes (Other)
  Sender: FDA-Public Use
  Company Number: US-AMGEN-USASP2010012058

PATIENT
  Age: 51 Year
  Sex: Female

DRUGS (3)
  1. METHOTREXATE [Concomitant]
  2. ENBREL [Suspect]
     Indication: RHEUMATOID ARTHRITIS
     Dosage: 50 MG, QWK
     Dates: start: 20100914
  3. NEURONTIN [Concomitant]

REACTIONS (4)
  - ABDOMINAL TENDERNESS [None]
  - INJECTION SITE HAEMATOMA [None]
  - HEPATIC ENZYME INCREASED [None]
  - INJECTION SITE HAEMORRHAGE [None]
